FAERS Safety Report 8817364 (Version 16)
Quarter: 2018Q3

REPORT INFORMATION
  Report Type: Report from Study
  Country: JP (occurrence: JP)
  Receive Date: 20121001
  Receipt Date: 20180802
  Transmission Date: 20181010
  Serious: Yes (Other)
  Sender: FDA-Public Use
  Company Number: JP-ASTELLAS-2011JP001215

PATIENT
  Age: 41 Year
  Sex: Female
  Weight: 63 kg

DRUGS (72)
  1. PREDNISOLONE. [Suspect]
     Active Substance: PREDNISOLONE
     Route: 048
     Dates: start: 20100928, end: 20101227
  2. MEIACT [Concomitant]
     Active Substance: CEFDITOREN PIVOXIL
     Route: 048
     Dates: start: 20130128, end: 20130202
  3. FOSAMAC [Concomitant]
     Active Substance: ALENDRONATE SODIUM
     Indication: PROPHYLAXIS
     Route: 048
     Dates: end: 20130827
  4. LOXONIN [Concomitant]
     Active Substance: LOXOPROFEN SODIUM
     Indication: ARTHRALGIA
  5. JANUVIA [Concomitant]
     Active Substance: SITAGLIPTIN PHOSPHATE
     Route: 048
     Dates: start: 20130305, end: 20131127
  6. PROMAC                             /00024401/ [Concomitant]
     Active Substance: NITROFURANTOIN
     Indication: PROPHYLAXIS AGAINST GASTROINTESTINAL ULCER
     Route: 048
     Dates: start: 20111114
  7. MYCOSYST [Concomitant]
     Active Substance: FLUCONAZOLE
     Indication: OESOPHAGEAL CANDIDIASIS
     Route: 048
     Dates: start: 20130919, end: 20131002
  8. ALLEGRA [Concomitant]
     Active Substance: FEXOFENADINE HYDROCHLORIDE
     Indication: PRURITUS
     Dosage: UNK UNK, UNKNOWN FREQ.
     Route: 065
  9. PREDNISOLONE. [Suspect]
     Active Substance: PREDNISOLONE
     Indication: LUPUS NEPHRITIS
     Route: 048
     Dates: end: 20090907
  10. PREDNISOLONE. [Suspect]
     Active Substance: PREDNISOLONE
     Route: 048
     Dates: start: 20130305, end: 20130603
  11. TAKEPRON [Concomitant]
     Active Substance: LANSOPRAZOLE
     Indication: PROPHYLAXIS
     Route: 048
     Dates: end: 20131017
  12. MUCOSTA [Concomitant]
     Active Substance: REBAMIPIDE
     Indication: PROPHYLAXIS
     Route: 048
     Dates: end: 20111113
  13. PL [Concomitant]
     Active Substance: ACETAMINOPHEN\CAFFEINE\PROMETHAZINE\SALICYLAMIDE
     Indication: NASOPHARYNGITIS
     Route: 048
     Dates: start: 20100927, end: 20100930
  14. JANUVIA [Concomitant]
     Active Substance: SITAGLIPTIN PHOSPHATE
     Route: 048
     Dates: start: 20110705, end: 20130304
  15. TACROLIMUS. [Suspect]
     Active Substance: TACROLIMUS
     Indication: LUPUS NEPHRITIS
     Route: 048
     Dates: start: 20080403
  16. FOSAMAC [Concomitant]
     Active Substance: ALENDRONATE SODIUM
     Indication: PROPHYLAXIS
     Route: 048
  17. TERNELIN [Concomitant]
     Active Substance: TIZANIDINE
     Indication: HEADACHE
     Route: 048
     Dates: end: 20090525
  18. MUCODYNE [Concomitant]
     Active Substance: CARBOCYSTEINE
     Route: 048
     Dates: start: 20130128, end: 20130210
  19. JANUVIA [Concomitant]
     Active Substance: SITAGLIPTIN PHOSPHATE
     Indication: PROPHYLAXIS
     Route: 048
     Dates: start: 20110404, end: 20110704
  20. BIO?THREE [Concomitant]
     Active Substance: HERBALS
     Route: 048
     Dates: start: 20130603, end: 20130612
  21. MICARDIS [Concomitant]
     Active Substance: TELMISARTAN
     Indication: HYPERTENSION
     Route: 048
     Dates: start: 20140619, end: 20170301
  22. MOHRUS [Concomitant]
     Active Substance: KETOPROFEN
     Indication: MYALGIA
     Route: 065
     Dates: start: 20140303, end: 20151125
  23. GASCON [Concomitant]
     Active Substance: DIMETHICONE
     Indication: FLATULENCE
     Route: 048
     Dates: start: 20140303, end: 20140401
  24. PREDNISOLONE. [Suspect]
     Active Substance: PREDNISOLONE
     Route: 048
     Dates: start: 20090908, end: 20100927
  25. PREDNISOLONE. [Suspect]
     Active Substance: PREDNISOLONE
     Route: 048
     Dates: start: 20130604, end: 20130902
  26. PREDNISOLONE. [Suspect]
     Active Substance: PREDNISOLONE
     Route: 048
     Dates: start: 20140901, end: 20180328
  27. IMURAN [Concomitant]
     Active Substance: AZATHIOPRINE
     Route: 048
     Dates: start: 20111115, end: 20150308
  28. GASMOTIN [Concomitant]
     Active Substance: MOSAPRIDE CITRATE
     Indication: ENTEROCOLITIS
     Route: 048
     Dates: start: 20120621, end: 20120802
  29. HOKUNALIN [Concomitant]
     Active Substance: TULOBUTEROL
     Indication: ASTHMA
     Route: 062
     Dates: start: 20090525, end: 20120226
  30. CRAVIT [Concomitant]
     Active Substance: LEVOFLOXACIN
     Indication: NASOPHARYNGITIS
     Route: 048
     Dates: start: 20120510, end: 20120514
  31. LOXONIN [Concomitant]
     Active Substance: LOXOPROFEN SODIUM
     Indication: ARTHRITIS
  32. ADOAIR [Concomitant]
     Active Substance: FLUTICASONE PROPIONATE\SALMETEROL XINAFOATE
     Indication: PROPHYLAXIS
     Route: 055
     Dates: start: 20120802, end: 20131127
  33. RESPLEN [Concomitant]
     Active Substance: EPRAZINONE
     Indication: BRONCHITIS
     Route: 048
     Dates: start: 20100125, end: 20100131
  34. TRANSAMIN [Concomitant]
     Active Substance: TRANEXAMIC ACID
     Indication: NASOPHARYNGITIS
     Route: 048
     Dates: start: 20120510, end: 20120516
  35. ARTIST [Concomitant]
     Active Substance: CARVEDILOL
     Indication: BLOOD PRESSURE INCREASED
     Route: 048
     Dates: start: 20130325, end: 20171025
  36. BIO?THREE [Concomitant]
     Active Substance: HERBALS
     Indication: ENTEROCOLITIS
     Route: 048
     Dates: start: 20130422, end: 20130501
  37. PREDNISOLONE. [Suspect]
     Active Substance: PREDNISOLONE
     Route: 048
     Dates: start: 20101228, end: 20110307
  38. IMURAN [Concomitant]
     Active Substance: AZATHIOPRINE
     Route: 048
     Dates: start: 20110607, end: 20111114
  39. BIOFERMIN                          /01617201/ [Concomitant]
     Active Substance: BACILLUS SUBTILIS\LACTOBACILLUS ACIDOPHILUS\STREPTOCOCCUS FAECAIS
     Indication: ENTEROCOLITIS
     Route: 048
     Dates: start: 20120621, end: 20120802
  40. THEOLONG [Concomitant]
     Active Substance: THEOPHYLLINE ANHYDROUS
     Indication: ASTHMA
     Route: 048
     Dates: start: 20120802, end: 20130127
  41. DEPAS [Concomitant]
     Active Substance: ETIZOLAM
     Indication: INSOMNIA
     Dosage: 0.5 MG, ONCE DAILY
     Route: 048
     Dates: start: 20090126, end: 20090525
  42. LOXONIN [Concomitant]
     Active Substance: LOXOPROFEN SODIUM
     Indication: HEADACHE
     Route: 048
     Dates: end: 20080727
  43. LOXONIN [Concomitant]
     Active Substance: LOXOPROFEN SODIUM
     Indication: SLE ARTHRITIS
     Route: 048
     Dates: start: 20080728
  44. ORADOL                             /00093302/ [Concomitant]
     Indication: NASOPHARYNGITIS
     Dosage: UNK,UNK, UNKNOWN FREQ.
     Route: 061
     Dates: start: 20120520, end: 20120526
  45. MIYA?BM [Concomitant]
     Active Substance: CLOSTRIDIUM BUTYRICUM SPORES STRAIN M-55
     Indication: ENTEROCOLITIS
     Route: 048
     Dates: start: 20131017, end: 20131127
  46. RIKKUNSHITO                        /08041001/ [Concomitant]
     Active Substance: HERBALS
     Indication: ABDOMINAL DISTENSION
     Route: 048
     Dates: start: 20140619, end: 20141015
  47. PREDNISOLONE. [Suspect]
     Active Substance: PREDNISOLONE
     Route: 048
     Dates: start: 20130903, end: 20140831
  48. IMURAN [Concomitant]
     Active Substance: AZATHIOPRINE
     Indication: LUPUS NEPHRITIS
     Route: 048
     Dates: start: 20101227, end: 20110307
  49. IMURAN [Concomitant]
     Active Substance: AZATHIOPRINE
     Route: 048
     Dates: start: 20110308, end: 20110606
  50. TRYPTANOL                          /00002202/ [Concomitant]
     Active Substance: AMITRIPTYLINE
     Indication: HEADACHE
     Route: 048
     Dates: start: 20120815, end: 20120828
  51. MEIACT [Concomitant]
     Active Substance: CEFDITOREN PIVOXIL
     Indication: BRONCHITIS
     Route: 048
     Dates: start: 20120802, end: 20120806
  52. FLAVITAN [Concomitant]
     Active Substance: FLAVIN ADENINE DINUCLEOTIDE
     Indication: STOMATITIS
     Route: 048
     Dates: start: 20090309, end: 20090709
  53. TERNELIN [Concomitant]
     Active Substance: TIZANIDINE
     Indication: MUSCULOSKELETAL STIFFNESS
     Route: 048
     Dates: start: 20090409
  54. TERNELIN [Concomitant]
     Active Substance: TIZANIDINE
     Indication: CERVICOBRACHIAL SYNDROME
     Route: 048
     Dates: start: 20140303, end: 20140420
  55. ADOAIR [Concomitant]
     Active Substance: FLUTICASONE PROPIONATE\SALMETEROL XINAFOATE
     Indication: ASTHMA
     Route: 055
     Dates: start: 20090525
  56. ZITHROMAC [Concomitant]
     Active Substance: AZITHROMYCIN DIHYDRATE
     Indication: BRONCHITIS
     Route: 048
     Dates: start: 20100125, end: 20100127
  57. JANUVIA [Concomitant]
     Active Substance: SITAGLIPTIN PHOSPHATE
     Route: 048
     Dates: start: 20140303
  58. HIBON [Concomitant]
     Active Substance: RIBOFLAVIN
     Indication: GLOSSITIS
     Route: 048
     Dates: start: 20101122, end: 20110201
  59. TENELIA [Concomitant]
     Active Substance: TENELIGLIPTIN
     Indication: DIABETES MELLITUS
     Route: 048
     Dates: start: 20131128, end: 20140302
  60. PREDNISOLONE. [Suspect]
     Active Substance: PREDNISOLONE
     Route: 048
     Dates: start: 20110308, end: 20130304
  61. PREDNISOLONE. [Suspect]
     Active Substance: PREDNISOLONE
     Route: 048
     Dates: start: 20180329
  62. TRYPTANOL                          /00002202/ [Concomitant]
     Active Substance: AMITRIPTYLINE
     Route: 048
     Dates: start: 20120829, end: 20130127
  63. THEOLONG [Concomitant]
     Active Substance: THEOPHYLLINE ANHYDROUS
     Indication: PROPHYLAXIS
     Route: 048
     Dates: start: 20130128
  64. CRAVIT [Concomitant]
     Active Substance: LEVOFLOXACIN
     Indication: ARTHRITIS
     Route: 048
     Dates: start: 20091204, end: 20091210
  65. MUCODYNE [Concomitant]
     Active Substance: CARBOCYSTEINE
     Indication: BRONCHITIS
     Route: 048
     Dates: start: 20100125, end: 20100131
  66. KAKKONTO [Concomitant]
     Active Substance: HERBALS
     Indication: NASOPHARYNGITIS
     Route: 048
     Dates: start: 20111114, end: 20111117
  67. IMURAN [Concomitant]
     Active Substance: AZATHIOPRINE
     Route: 048
     Dates: start: 20150309
  68. SALCOAT [Concomitant]
     Active Substance: BECLOMETHASONE DIPROPIONATE
     Indication: STOMATITIS
     Dosage: UNK, UNK, UNKNOWN FREQ.
     Route: 061
     Dates: start: 20121004, end: 20121023
  69. FLAVITAN [Concomitant]
     Active Substance: FLAVIN ADENINE DINUCLEOTIDE
     Indication: CHEILITIS
     Route: 048
     Dates: start: 20121210, end: 20121223
  70. ARTIST [Concomitant]
     Active Substance: CARVEDILOL
     Indication: PROPHYLAXIS
  71. ARTIST [Concomitant]
     Active Substance: CARVEDILOL
     Indication: HYPERTENSION
  72. MICARDIS [Concomitant]
     Active Substance: TELMISARTAN
     Indication: PROPHYLAXIS
     Route: 048
     Dates: start: 20170302

REACTIONS (21)
  - Musculoskeletal stiffness [Recovering/Resolving]
  - Enteritis infectious [Recovering/Resolving]
  - Diabetes mellitus [Recovering/Resolving]
  - Hypertension [Recovering/Resolving]
  - Nasopharyngitis [Recovered/Resolved]
  - Arthritis [Recovering/Resolving]
  - Angular cheilitis [Recovering/Resolving]
  - Headache [Recovering/Resolving]
  - Flatulence [Recovering/Resolving]
  - Glossitis [Recovering/Resolving]
  - Pruritus [Recovering/Resolving]
  - Stomatitis [Recovering/Resolving]
  - Blood pressure increased [Recovering/Resolving]
  - Oesophageal candidiasis [Recovering/Resolving]
  - Cervicobrachial syndrome [Recovering/Resolving]
  - Sinusitis [Recovering/Resolving]
  - Insomnia [Recovering/Resolving]
  - Myalgia [Not Recovered/Not Resolved]
  - Bronchitis [Recovering/Resolving]
  - Asthma [Recovering/Resolving]
  - Abdominal distension [Recovering/Resolving]

NARRATIVE: CASE EVENT DATE: 200812
